FAERS Safety Report 15230420 (Version 1)
Quarter: 2018Q3

REPORT INFORMATION
  Report Type: Report from Study
  Country: AR (occurrence: AR)
  Receive Date: 20180802
  Receipt Date: 20180802
  Transmission Date: 20181010
  Serious: Yes (Death)
  Sender: FDA-Public Use
  Company Number: AR-EMD SERONO-E2B_90053498

PATIENT
  Age: 67 Year
  Sex: Male

DRUGS (1)
  1. REBIF [Suspect]
     Active Substance: INTERFERON BETA-1A
     Indication: MULTIPLE SCLEROSIS
     Route: 058
     Dates: start: 20060519

REACTIONS (2)
  - Cardiac arrest [Fatal]
  - Condition aggravated [Unknown]

NARRATIVE: CASE EVENT DATE: 20180723
